FAERS Safety Report 8131803-8 (Version None)
Quarter: 2012Q1

REPORT INFORMATION
  Report Type: 
  Country: None (occurrence: None)
  Receive Date: 20120213
  Receipt Date: 20120201
  Transmission Date: 20120608
  Serious: Yes (Life-Threatening, Hospitalization, Other)
  Sender: FDA-Public Use
  Company Number: US-MYLANLABS-2012S1002991

PATIENT
  Sex: Male
  Weight: 95.9 kg

DRUGS (20)
  1. LISINOPRIL [Concomitant]
  2. ASPIRIN [Concomitant]
  3. LASIX [Concomitant]
  4. VYTORIN [Concomitant]
  5. ZOCOR [Concomitant]
  6. CARBAMIDE [Concomitant]
  7. AMIODARONE HCL [Concomitant]
  8. COREG [Concomitant]
  9. ISOSORBIDE DINITRATE [Concomitant]
  10. GLIPIZIDE [Concomitant]
  11. NITROGLYCERIN [Concomitant]
  12. PLAVIX [Concomitant]
  13. DIGOXIN [Suspect]
     Route: 048
     Dates: start: 20030905, end: 20080919
  14. HYDROGEN PEROXIDE SOLUTION [Concomitant]
  15. MAGNESIUM [Concomitant]
  16. SOTALOL HCL [Concomitant]
  17. SPIRONOLACTONE [Concomitant]
  18. LOVENOX [Concomitant]
  19. METFORMIN HCL [Concomitant]
  20. PRAVASTATIN [Concomitant]

REACTIONS (59)
  - TYPE 2 DIABETES MELLITUS [None]
  - CORONARY ARTERY DISEASE [None]
  - BUNDLE BRANCH BLOCK RIGHT [None]
  - HYPERTENSION [None]
  - PSYCHIATRIC EVALUATION ABNORMAL [None]
  - OXYGEN SATURATION DECREASED [None]
  - CARDIAC FAILURE CONGESTIVE [None]
  - STRESS [None]
  - LEFT VENTRICULAR HYPERTROPHY [None]
  - DYSPNOEA EXERTIONAL [None]
  - CHEST X-RAY ABNORMAL [None]
  - DRY MOUTH [None]
  - CARDIAC VALVE DISEASE [None]
  - DIASTOLIC DYSFUNCTION [None]
  - DILATATION VENTRICULAR [None]
  - CREPITATIONS [None]
  - BREATH SOUNDS ABNORMAL [None]
  - SUPRAVENTRICULAR TACHYCARDIA [None]
  - CARDIAC DISORDER [None]
  - ACUTE MYOCARDIAL INFARCTION [None]
  - OBESITY [None]
  - DILATATION ATRIAL [None]
  - DYSPNOEA [None]
  - DRUG LEVEL BELOW THERAPEUTIC [None]
  - PAIN [None]
  - RESPIRATORY FAILURE [None]
  - CONGESTIVE CARDIOMYOPATHY [None]
  - HYPERTHYROIDISM [None]
  - DISEASE RECURRENCE [None]
  - HYPERHIDROSIS [None]
  - EXERCISE TOLERANCE DECREASED [None]
  - WHEEZING [None]
  - TACHYPNOEA [None]
  - JUGULAR VEIN DISTENSION [None]
  - INJURY [None]
  - ECONOMIC PROBLEM [None]
  - OBSTRUCTIVE AIRWAYS DISORDER [None]
  - PULMONARY CONGESTION [None]
  - SINUS TACHYCARDIA [None]
  - AGITATION [None]
  - OEDEMA PERIPHERAL [None]
  - INSOMNIA [None]
  - ELECTROCARDIOGRAM ABNORMAL [None]
  - PULMONARY OEDEMA [None]
  - RESPIRATORY DISTRESS [None]
  - HYPERLIPIDAEMIA [None]
  - CHRONIC OBSTRUCTIVE PULMONARY DISEASE [None]
  - ELECTROCARDIOGRAM QRS COMPLEX PROLONGED [None]
  - EMOTIONAL DISTRESS [None]
  - ANXIETY [None]
  - ATRIAL FIBRILLATION [None]
  - PULMONARY HYPERTENSION [None]
  - PERICARDIAL EFFUSION [None]
  - PARANOIA [None]
  - HYPOKINESIA [None]
  - RALES [None]
  - LABORATORY TEST ABNORMAL [None]
  - TROPONIN INCREASED [None]
  - ILL-DEFINED DISORDER [None]
